FAERS Safety Report 21785437 (Version 1)
Quarter: 2022Q4

REPORT INFORMATION
  Report Type: Spontaneous
  Country: US (occurrence: US)
  Receive Date: 20221227
  Receipt Date: 20221227
  Transmission Date: 20230113
  Serious: No
  Sender: FDA-Public Use
  Company Number: US-MYLANLABS-2022M1145237

PATIENT
  Age: 59 Year
  Sex: Female

DRUGS (2)
  1. SEMGLEE (INSULIN GLARGINE-YFGN) [Suspect]
     Active Substance: INSULIN GLARGINE-YFGN
     Indication: Type 1 diabetes mellitus
     Dosage: 10 INTERNATIONAL UNIT, AM (10 UNITS IN THE MORNING AND 10 UNITS AT NIGHT)
     Route: 058
     Dates: start: 20221218
  2. SEMGLEE (INSULIN GLARGINE-YFGN) [Suspect]
     Active Substance: INSULIN GLARGINE-YFGN
     Dosage: 10 INTERNATIONAL UNIT, HS (10 UNITS IN THE MORNING AND 10 UNITS AT NIGHT)
     Route: 058
     Dates: start: 20221218

REACTIONS (2)
  - Device mechanical issue [Unknown]
  - Product storage error [Unknown]

NARRATIVE: CASE EVENT DATE: 20221218
